FAERS Safety Report 13923645 (Version 1)
Quarter: 2017Q3

REPORT INFORMATION
  Report Type: Spontaneous
  Country: US (occurrence: US)
  Receive Date: 20170830
  Receipt Date: 20170830
  Transmission Date: 20171127
  Serious: Yes (Other)
  Sender: FDA-Public Use
  Company Number: None

PATIENT
  Age: 65 Year
  Sex: Female
  Weight: 72.57 kg

DRUGS (20)
  1. XARELTO [Concomitant]
     Active Substance: RIVAROXABAN
  2. KLOR-CON M20 [Concomitant]
     Active Substance: POTASSIUM CHLORIDE
  3. CITALOPRAM [Concomitant]
     Active Substance: CITALOPRAM HYDROBROMIDE
  4. VITAMIN B12 [Concomitant]
     Active Substance: CYANOCOBALAMIN
  5. SPIRIVA [Concomitant]
     Active Substance: TIOTROPIUM BROMIDE MONOHYDRATE
  6. DILTIAZEM CD [Concomitant]
     Active Substance: DILTIAZEM
  7. LOPRESSOR [Concomitant]
     Active Substance: METOPROLOL TARTRATE
  8. VICODIN ES [Concomitant]
     Active Substance: ACETAMINOPHEN\HYDROCODONE BITARTRATE
  9. CLONAZEPAM. [Concomitant]
     Active Substance: CLONAZEPAM
  10. FOLIC ACID. [Concomitant]
     Active Substance: FOLIC ACID
  11. ZOFRAN [Concomitant]
     Active Substance: ONDANSETRON HYDROCHLORIDE
  12. TRAZODONE [Concomitant]
     Active Substance: TRAZODONE HYDROCHLORIDE
  13. DIGOXIN. [Concomitant]
     Active Substance: DIGOXIN
  14. FAMOTIDINE. [Concomitant]
     Active Substance: FAMOTIDINE
  15. CLARITIN [Concomitant]
     Active Substance: LORATADINE
  16. MULTIVITAMIN [Concomitant]
     Active Substance: VITAMINS
  17. ZOLPIDEM [Concomitant]
     Active Substance: ZOLPIDEM\ZOLPIDEM TARTRATE
  18. LASIX [Concomitant]
     Active Substance: FUROSEMIDE
  19. IBRANCE [Suspect]
     Active Substance: PALBOCICLIB
     Indication: BREAST CANCER FEMALE
     Route: 048
     Dates: start: 20170113, end: 20170822
  20. FASLODEX [Concomitant]
     Active Substance: FULVESTRANT

REACTIONS (3)
  - Vomiting [None]
  - Feeding disorder [None]
  - Therapy cessation [None]
